FAERS Safety Report 17684968 (Version 3)
Quarter: 2020Q4

REPORT INFORMATION
  Report Type: Report from Study
  Country: BR (occurrence: BR)
  Receive Date: 20200420
  Receipt Date: 20201118
  Transmission Date: 20210113
  Serious: Yes (Other)
  Sender: FDA-Public Use
  Company Number: NVSC2020BR086802

PATIENT
  Age: 71 Year
  Sex: Female
  Weight: 65 kg

DRUGS (10)
  1. METHOTREXATE. [Concomitant]
     Active Substance: METHOTREXATE
     Indication: PSORIATIC ARTHROPATHY
     Dosage: 1 DF, QW (STARTED MORE THAN 10 YEARS AGO)
     Route: 058
     Dates: end: 201912
  2. OMEPRAZOLE. [Concomitant]
     Active Substance: OMEPRAZOLE
     Indication: GASTRITIS
     Dosage: 20 MG, QD (STOPPED ON 4 OR 5 MONTHS AGO)
     Route: 048
     Dates: start: 202005
  3. FOLIC ACID. [Concomitant]
     Active Substance: FOLIC ACID
     Indication: FOLATE DEFICIENCY
     Dosage: 1 DF, QD (STARTED MORE THAN 10 YEARS AGO)
     Route: 048
     Dates: start: 201912
  4. COSENTYX [Suspect]
     Active Substance: SECUKINUMAB
     Dosage: LAST APPLICATION
     Route: 065
     Dates: start: 202003
  5. COSENTYX [Suspect]
     Active Substance: SECUKINUMAB
     Indication: PSORIATIC ARTHROPATHY
     Dosage: 300 MG, UNKNOWN
     Route: 058
     Dates: start: 20190828
  6. COSENTYX [Suspect]
     Active Substance: SECUKINUMAB
     Dosage: 1 DF, QMO (7 YEARS AGO)
     Route: 058
  7. COSENTYX [Suspect]
     Active Substance: SECUKINUMAB
     Dosage: 1 DF, QMO (7 YEARS AGO)
     Route: 058
  8. COSENTYX [Suspect]
     Active Substance: SECUKINUMAB
     Dosage: 150 MG, QMO
     Route: 058
     Dates: start: 2019
  9. ESOMEPRAZOL [Concomitant]
     Active Substance: ESOMEPRAZOLE
     Indication: GASTRITIS
     Dosage: 40 MG, QD
     Route: 048
     Dates: start: 202004, end: 202006
  10. LOSARTAN. [Concomitant]
     Active Substance: LOSARTAN
     Indication: HYPERTENSION
     Dosage: 50 MG, QD (STARTED AROUND 20 YEARS AGO)
     Route: 048
     Dates: end: 2019

REACTIONS (34)
  - Feeling of despair [Recovered/Resolved]
  - Weight decreased [Not Recovered/Not Resolved]
  - Oral candidiasis [Not Recovered/Not Resolved]
  - Asthenia [Not Recovered/Not Resolved]
  - Nasal dryness [Recovering/Resolving]
  - Head discomfort [Recovering/Resolving]
  - Illness [Unknown]
  - Eating disorder [Recovered/Resolved]
  - Sleep disorder [Recovered/Resolved]
  - Oral pain [Recovered/Resolved]
  - Oropharyngeal pain [Recovering/Resolving]
  - Feeding disorder [Recovered/Resolved]
  - Burning sensation [Recovering/Resolving]
  - Dry mouth [Recovering/Resolving]
  - Chronic gastritis [Not Recovered/Not Resolved]
  - Sinusitis [Recovering/Resolving]
  - Oral disorder [Recovered/Resolved]
  - Psoriasis [Recovered/Resolved]
  - Nervousness [Unknown]
  - Tongue disorder [Not Recovered/Not Resolved]
  - Dry throat [Recovering/Resolving]
  - Candida infection [Recovered/Resolved]
  - Insomnia [Recovered/Resolved]
  - Immunodeficiency [Recovered/Resolved]
  - Emotional disorder [Recovered/Resolved]
  - Confusional state [Recovered/Resolved]
  - Fatigue [Recovering/Resolving]
  - Throat irritation [Recovered/Resolved]
  - Decreased appetite [Recovered/Resolved]
  - Discouragement [Recovering/Resolving]
  - Stomatitis [Not Recovered/Not Resolved]
  - Tongue rough [Not Recovered/Not Resolved]
  - Nausea [Recovered/Resolved]
  - Palate injury [Unknown]

NARRATIVE: CASE EVENT DATE: 201912
